FAERS Safety Report 7805496-0 (Version None)
Quarter: 2011Q4

REPORT INFORMATION
  Report Type: 
  Country: None (occurrence: None)
  Receive Date: 20111010
  Receipt Date: 20111003
  Transmission Date: 20120403
  Serious: Yes (Hospitalization, Other)
  Sender: FDA-Public Use
  Company Number: PHEH2011US03333

PATIENT
  Sex: Female
  Weight: 68.027 kg

DRUGS (14)
  1. GILENYA [Suspect]
     Indication: MULTIPLE SCLEROSIS
     Dosage: 0.5 MG, QD
     Route: 048
     Dates: start: 20110819
  2. PRIMROSE OIL [Concomitant]
     Dosage: UNK UKN, UNK
  3. VITAMIN D [Concomitant]
     Dosage: UNK UKN, UNK
  4. LISINOPRIL [Concomitant]
     Dosage: 10 MG, UNK
  5. ESTRADIOL [Concomitant]
     Dosage: 2 MG, UNK
  6. LIPITOR [Concomitant]
     Dosage: 10 MG, UNK
  7. NEXIUM                             /01479303/ [Concomitant]
     Dosage: 20 MG, UNK
  8. COQ10 [Concomitant]
     Dosage: UNK UKN, UNK
  9. BYSTOLIC [Concomitant]
     Dosage: 10 MG, UNK
  10. EFFEXOR [Concomitant]
     Dosage: 100 MG, UNK
  11. LOVAZA [Concomitant]
     Dosage: 1200 MG, UNK
  12. PROGESTERONE [Concomitant]
     Dosage: UNK UKN, UNK
  13. CALCIUM WITH VITAMIN D [Concomitant]
     Dosage: UNK UKN, UNK
  14. ASPIRIN [Concomitant]
     Dosage: 81 MG, UNK

REACTIONS (6)
  - PARAESTHESIA [None]
  - HYPERTENSION [None]
  - CHEST PAIN [None]
  - HYPOAESTHESIA [None]
  - MULTIPLE SCLEROSIS RELAPSE [None]
  - COGNITIVE DISORDER [None]
